FAERS Safety Report 8669927 (Version 5)
Quarter: 2012Q4

REPORT INFORMATION
  Report Type: Report from Study
  Country: FR (occurrence: FR)
  Receive Date: 20120718
  Receipt Date: 20121018
  Transmission Date: 20130627
  Serious: Yes (Death, Hospitalization)
  Sender: FDA-Public Use
  Company Number: FR-CELGENEUS-056-21880-12070706

PATIENT
  Age: 90 Year

DRUGS (3)
  1. REVLIMID [Suspect]
     Indication: MULTIPLE MYELOMA
     Dosage: 25 Milligram
     Route: 048
     Dates: start: 20120531, end: 20120620
  2. COUMADIN [Concomitant]
     Indication: ATRIAL FIBRILLATION
     Route: 065
     Dates: end: 20120612
  3. COUMADIN [Concomitant]
     Route: 065
     Dates: start: 20120616, end: 20120622

REACTIONS (4)
  - Ischaemic stroke [Fatal]
  - Fall [Unknown]
  - Arthritis [Unknown]
  - Haematoma [Unknown]
